FAERS Safety Report 8771339 (Version 5)
Quarter: 2012Q4

REPORT INFORMATION
  Report Type: 
  Country: JP (occurrence: JP)
  Receive Date: 20120906
  Receipt Date: 20121025
  Transmission Date: 20130627
  Serious: Yes (Other)
  Sender: FDA-Public Use
  Company Number: PHHY2012JP071660

PATIENT
  Age: 60 Year
  Sex: Male

DRUGS (1)
  1. GLIVEC [Suspect]
     Indication: CHRONIC MYELOID LEUKAEMIA
     Dosage: 400 mg,daily
     Route: 048
     Dates: start: 2001, end: 20111006

REACTIONS (7)
  - Myelodysplastic syndrome [Not Recovered/Not Resolved]
  - Myelofibrosis [Unknown]
  - Chronic myeloid leukaemia [Unknown]
  - Malignant neoplasm progression [Unknown]
  - Bone marrow failure [Unknown]
  - Pancytopenia [Not Recovered/Not Resolved]
  - Platelet count decreased [Unknown]
